FAERS Safety Report 7027254-X (Version None)
Quarter: 2010Q4

REPORT INFORMATION
  Report Type: 
  Country: None (occurrence: None)
  Receive Date: 20101004
  Receipt Date: 20100924
  Transmission Date: 20110411
  Serious: Yes (Other)
  Sender: FDA-Public Use
  Company Number: IE-ABBOTT-10P-229-0674078-00

PATIENT
  Age: 30 Year
  Sex: Female

DRUGS (1)
  1. EPILIM [Suspect]
     Indication: BIPOLAR DISORDER

REACTIONS (2)
  - BREAST CANCER [None]
  - OVARIAN CYST [None]
